FAERS Safety Report 16581696 (Version 3)
Quarter: 2019Q3

REPORT INFORMATION
  Report Type: Spontaneous
  Country: US (occurrence: US)
  Receive Date: 20190716
  Receipt Date: 20190807
  Transmission Date: 20191004
  Serious: No
  Sender: FDA-Public Use
  Company Number: US-AMGEN-USASP2019112816

PATIENT
  Age: 73 Year
  Sex: Male
  Weight: 115.4 kg

DRUGS (1)
  1. NEULASTA [Suspect]
     Active Substance: PEGFILGRASTIM
     Indication: NEUTROPENIA
     Dosage: 6 MILLIGRAM
     Route: 058

REACTIONS (1)
  - Unintentional medical device removal [Unknown]

NARRATIVE: CASE EVENT DATE: 20190704
